FAERS Safety Report 4282486-9 (Version None)
Quarter: 2004Q1

REPORT INFORMATION
  Report Type: 
  Country: None (occurrence: None)
  Receive Date: 20040129
  Receipt Date: 20040113
  Transmission Date: 20041129
  Serious: Yes (Other)
  Sender: FDA-Public Use
  Company Number: 185584

PATIENT
  Age: 56 Year
  Sex: Female

DRUGS (15)
  1. AVONEX [Suspect]
     Indication: MULTIPLE SCLEROSIS
     Dosage: 30 MCG QW IM
     Route: 030
     Dates: start: 19981201
  2. IBUPROFEN [Concomitant]
  3. NEURONTIN [Concomitant]
  4. ZOLOFT [Concomitant]
  5. KLONOPIN [Concomitant]
  6. LIPITOR [Concomitant]
  7. BACLOFEN [Concomitant]
  8. TIZANIDINE HCL [Concomitant]
  9. LEVOTHROID [Concomitant]
  10. CLARITIN [Concomitant]
  11. ZYRTEC [Concomitant]
  12. VIOXX [Concomitant]
  13. PREMPRO [Concomitant]
  14. DITROPAN [Concomitant]
  15. ESTROGEN (NOS) [Concomitant]

REACTIONS (2)
  - BREAST CANCER [None]
  - VAGINAL CANCER [None]
